FAERS Safety Report 6136689-9 (Version None)
Quarter: 2009Q1

REPORT INFORMATION
  Report Type: 
  Country: None (occurrence: None)
  Receive Date: 20090330
  Receipt Date: 20090316
  Transmission Date: 20090719
  Serious: Yes (Hospitalization, Other)
  Sender: FDA-Public Use
  Company Number: PHHO2009GB02621

PATIENT
  Sex: Male

DRUGS (7)
  1. ZOL V ZOL + DOCETAXEL V ZOL + CELECOXIB [Suspect]
     Indication: METASTASES TO BONE
     Dosage: 4 MG, EVERY THREE WEEKS
     Route: 042
     Dates: start: 20080401
  2. ZOMETA [Suspect]
     Dosage: UNK
     Dates: start: 20081101
  3. STILBOESTROL [Suspect]
  4. VITAMIN D [Concomitant]
  5. CALCIUM [Concomitant]
  6. ASPIRIN [Concomitant]
  7. ACETAMINOPHEN W/ CODEINE [Concomitant]

REACTIONS (8)
  - BLOOD CALCIUM DECREASED [None]
  - BLOOD PHOSPHORUS DECREASED [None]
  - DISEASE PROGRESSION [None]
  - DYSPNOEA [None]
  - MUSCULAR WEAKNESS [None]
  - NEURALGIA [None]
  - PARAESTHESIA [None]
  - TREMOR [None]
